FAERS Safety Report 7866161-7 (Version None)
Quarter: 2011Q4

REPORT INFORMATION
  Report Type: 
  Country: None (occurrence: None)
  Receive Date: 20111028
  Receipt Date: 20110503
  Transmission Date: 20120403
  Serious: No
  Sender: FDA-Public Use
  Company Number: US-GLAXOSMITHKLINE-A0925570A

PATIENT
  Age: 75 Year
  Sex: Female

DRUGS (7)
  1. DIOVAN [Concomitant]
  2. ADVAIR DISKUS 100/50 [Suspect]
     Indication: ASTHMA
     Route: 055
     Dates: start: 20110422
  3. PREDNISONE [Concomitant]
  4. NORVASC [Concomitant]
  5. ALBUTEROL [Concomitant]
  6. SINGULAIR [Concomitant]
  7. WARFARIN SODIUM [Concomitant]

REACTIONS (1)
  - NEUTROPHIL COUNT INCREASED [None]
